FAERS Safety Report 6730819-3 (Version None)
Quarter: 2010Q2

REPORT INFORMATION
  Report Type: 
  Country: None (occurrence: None)
  Receive Date: 20100514
  Receipt Date: 20100504
  Transmission Date: 20101027
  Serious: Yes (Other)
  Sender: FDA-Public Use
  Company Number: IPC201005-000126

PATIENT
  Age: 65 Year

DRUGS (3)
  1. FUROSEMIDE [Suspect]
     Indication: RENAL FAILURE CHRONIC
  2. CALCIUM [Concomitant]
  3. ALLOPURINOL [Concomitant]

REACTIONS (3)
  - BLOOD CREATININE INCREASED [None]
  - BLOOD UREA INCREASED [None]
  - LICHENOID KERATOSIS [None]
